FAERS Safety Report 25441597 (Version 1)
Quarter: 2025Q2

REPORT INFORMATION
  Report Type: Spontaneous
  Country: PT (occurrence: PT)
  Receive Date: 20250616
  Receipt Date: 20250616
  Transmission Date: 20250717
  Serious: Yes (Other)
  Sender: AMGEN
  Company Number: PT-AMGEN-PRTSP2025112690

PATIENT
  Age: 29 Year
  Sex: Female

DRUGS (7)
  1. ADALIMUMAB [Suspect]
     Active Substance: ADALIMUMAB
     Indication: Takayasu^s arteritis
     Route: 065
  2. PREDNISOLONE [Concomitant]
     Active Substance: PREDNISOLONE
     Dosage: 1 MILLIGRAM/KILOGRAM, QD
     Route: 048
  3. PREDNISOLONE [Concomitant]
     Active Substance: PREDNISOLONE
     Dosage: 15 MILLIGRAM, QD
     Route: 048
  4. AZATHIOPRINE [Concomitant]
     Active Substance: AZATHIOPRINE
  5. METHOTREXATE [Concomitant]
     Active Substance: METHOTREXATE
  6. TOCILIZUMAB [Concomitant]
     Active Substance: TOCILIZUMAB
  7. INFLIXIMAB [Concomitant]
     Active Substance: INFLIXIMAB

REACTIONS (5)
  - Takayasu^s arteritis [Unknown]
  - Cutaneous vasculitis [Unknown]
  - Erythema nodosum [Unknown]
  - Drug intolerance [Unknown]
  - Off label use [Unknown]
